FAERS Safety Report 5267393-7 (Version None)
Quarter: 2007Q1

REPORT INFORMATION
  Report Type: 
  Country: None (occurrence: None)
  Receive Date: 20070316
  Receipt Date: 20070306
  Transmission Date: 20070707
  Serious: Yes (Hospitalization)
  Sender: FDA-Public Use
  Company Number: IN-ELI_LILLY_AND_COMPANY-IN200703001116

PATIENT
  Sex: Male

DRUGS (6)
  1. PEMETREXED [Suspect]
     Indication: NON-SMALL CELL LUNG CANCER
     Dosage: 800 UG, UNK SINGLE DOSE
     Route: 042
     Dates: start: 20070226
  2. CISPLATIN [Concomitant]
     Indication: NON-SMALL CELL LUNG CANCER
  3. FOLVITE [Concomitant]
     Indication: PROPHYLAXIS
     Dosage: 5 MG, 2/D
  4. VITAMIN B-12 [Concomitant]
     Indication: PROPHYLAXIS
     Dosage: 1000 G, UNK
  5. DEXAMETHASONE [Concomitant]
     Indication: PROPHYLAXIS
     Dosage: 8 MG, 2/D
  6. ANTIEMETICS AND ANTINAUSEANTS [Concomitant]

REACTIONS (3)
  - JEJUNAL PERFORATION [None]
  - NEUTROPENIA [None]
  - THROMBOCYTOPENIA [None]
